FAERS Safety Report 9493488 (Version 2)
Quarter: 2013Q3

REPORT INFORMATION
  Report Type: Spontaneous
  Country: JP (occurrence: JP)
  Receive Date: 20130902
  Receipt Date: 20130913
  Transmission Date: 20140515
  Serious: Yes (Hospitalization, Other)
  Sender: FDA-Public Use
  Company Number: JP-JNJFOC-20130813344

PATIENT
  Age: 38 Year
  Sex: Female

DRUGS (2)
  1. ORTHO M 21 [Suspect]
     Indication: DYSMENORRHOEA
     Route: 048
  2. NORETHINDRONE/ETHINYL ESTRADIOL [Suspect]
     Indication: DYSMENORRHOEA
     Route: 048

REACTIONS (2)
  - Cerebral venous thrombosis [Recovering/Resolving]
  - Off label use [Unknown]
